FAERS Safety Report 16689163 (Version 2)
Quarter: 2019Q3

REPORT INFORMATION
  Report Type: Spontaneous
  Country: US (occurrence: US)
  Receive Date: 20190809
  Receipt Date: 20190809
  Transmission Date: 20191004
  Serious: Yes (Other)
  Sender: FDA-Public Use
  Company Number: US-GILEAD-2019-0422655

PATIENT
  Age: 53 Year
  Sex: Female

DRUGS (3)
  1. EMTRIVA [Suspect]
     Active Substance: EMTRICITABINE
     Indication: HIV INFECTION
     Dosage: 1 DOSAGE FORM, Q4DAYS, AFTER DIALYSIS
     Route: 065
  2. ABACAVIR. [Concomitant]
     Active Substance: ABACAVIR
  3. ISENTRESS [Concomitant]
     Active Substance: RALTEGRAVIR POTASSIUM

REACTIONS (3)
  - Acute kidney injury [Not Recovered/Not Resolved]
  - Product packaging quantity issue [Unknown]
  - Product dispensing issue [Unknown]
